FAERS Safety Report 23466995 (Version 1)
Quarter: 2024Q1

REPORT INFORMATION
  Report Type: Spontaneous
  Country: JP (occurrence: None)
  Receive Date: 20240201
  Receipt Date: 20240201
  Transmission Date: 20240409
  Serious: Yes (Other)
  Sender: FDA-Public Use
  Company Number: 2024A022073

PATIENT
  Age: 75 Year
  Sex: Female

DRUGS (2)
  1. LYNPARZA [Suspect]
     Active Substance: OLAPARIB
     Indication: Ovarian cancer
     Route: 048
     Dates: start: 20231026, end: 20231204
  2. AVASTIN [Concomitant]
     Active Substance: BEVACIZUMAB
     Indication: Ovarian cancer
     Dosage: DOSE UNKNOWN
     Dates: start: 20231026

REACTIONS (1)
  - Interstitial lung disease [Recovered/Resolved]

NARRATIVE: CASE EVENT DATE: 20231204
